FAERS Safety Report 6943984-X (Version None)
Quarter: 2010Q3

REPORT INFORMATION
  Report Type: 
  Country: None (occurrence: None)
  Receive Date: 20100826
  Receipt Date: 20100818
  Transmission Date: 20110219
  Serious: Yes (Other)
  Sender: FDA-Public Use
  Company Number: US-ABBOTT-10P-163-0653370-00

PATIENT
  Sex: Male
  Weight: 72.64 kg

DRUGS (3)
  1. HUMIRA [Suspect]
     Indication: PSORIATIC ARTHROPATHY
     Dates: start: 20100401
  2. LAMICTAL [Concomitant]
     Indication: CONVULSION PROPHYLAXIS
     Dates: start: 20030101
  3. SELDENE [Concomitant]
     Indication: PSORIATIC ARTHROPATHY

REACTIONS (7)
  - GROIN PAIN [None]
  - HYPERSOMNIA [None]
  - INCISION SITE COMPLICATION [None]
  - INCISION SITE OEDEMA [None]
  - INCISION SITE PAIN [None]
  - INGUINAL HERNIA [None]
  - JOINT SWELLING [None]
